FAERS Safety Report 7950954-1 (Version None)
Quarter: 2011Q4

REPORT INFORMATION
  Report Type: 
  Country: None (occurrence: None)
  Receive Date: 20111201
  Receipt Date: 20111122
  Transmission Date: 20120403
  Serious: No
  Sender: FDA-Public Use
  Company Number: US-BIOGENIDEC-2011BI044745

PATIENT
  Sex: Female

DRUGS (3)
  1. TYSABRI [Suspect]
     Indication: MULTIPLE SCLEROSIS
     Route: 042
     Dates: start: 20090910, end: 20110815
  2. FLEXERIL [Concomitant]
     Indication: MUSCLE SPASMS
  3. ULTRAM [Concomitant]
     Indication: PAIN

REACTIONS (13)
  - NEURALGIA [None]
  - MULTIPLE SCLEROSIS RELAPSE [None]
  - ENERGY INCREASED [None]
  - STEM CELL TRANSPLANT [None]
  - INFLUENZA [None]
  - ASTHENIA [None]
  - INSOMNIA [None]
  - MENTAL IMPAIRMENT [None]
  - BODY TEMPERATURE DECREASED [None]
  - PAIN [None]
  - PYREXIA [None]
  - SLEEP DISORDER [None]
  - SPEECH DISORDER [None]
